FAERS Safety Report 17762339 (Version 1)
Quarter: 2020Q2

REPORT INFORMATION
  Report Type: Spontaneous
  Country: DE (occurrence: DE)
  Receive Date: 20200508
  Receipt Date: 20200508
  Transmission Date: 20200714
  Serious: Yes (Other)
  Sender: FDA-Public Use
  Company Number: DE-ASTELLAS-2020US016312

PATIENT
  Age: 62 Year
  Sex: Female
  Weight: 50 kg

DRUGS (20)
  1. REGADENOSON [Suspect]
     Active Substance: REGADENOSON
     Indication: MYOCARDIAL ISCHAEMIA
  2. REGADENOSON [Suspect]
     Active Substance: REGADENOSON
     Indication: MYOCARDIAL ISCHAEMIA
  3. LACTULOSE RATHIOPHARM [Concomitant]
     Indication: CONSTIPATION
     Dosage: UNK UNK, UNKNOWN FREQ.
     Route: 065
  4. PREDNISOLON [PREDNISOLONE] [Concomitant]
     Active Substance: PREDNISOLONE
     Indication: ASTHMA
  5. RESTEX [Concomitant]
     Active Substance: BENSERAZIDE\LEVODOPA
     Indication: RESTLESS LEGS SYNDROME
     Dosage: UNK UNK, UNKNOWN FREQ.
     Route: 065
  6. PREDNISOLON [PREDNISOLONE] [Concomitant]
     Active Substance: PREDNISOLONE
     Indication: EMPHYSEMA
     Dosage: UNK UNK, UNKNOWN FREQ.
     Route: 065
  7. REGADENOSON [Suspect]
     Active Substance: REGADENOSON
     Indication: SCAN MYOCARDIAL PERFUSION
     Dosage: 80 ?G/ML, 1 AMPOULE, SINGLE
     Route: 042
     Dates: start: 20200423, end: 20200423
  8. REGADENOSON [Suspect]
     Active Substance: REGADENOSON
     Indication: SCAN MYOCARDIAL PERFUSION
     Dosage: 80 ?G/ML, 1 AMPOULE, SINGLE
     Route: 042
     Dates: start: 20200423, end: 20200423
  9. REGADENOSON [Suspect]
     Active Substance: REGADENOSON
     Indication: MYOCARDIAL ISCHAEMIA
  10. SPIRIVA RESPIMAT [Concomitant]
     Active Substance: TIOTROPIUM BROMIDE
     Indication: LUNG DISORDER
     Route: 065
  11. ALENDRON [Concomitant]
     Active Substance: ALENDRONATE SODIUM
     Indication: OSTEOPOROSIS
     Dosage: UNK UNK, UNKNOWN FREQ.
     Route: 065
  12. REGADENOSON [Suspect]
     Active Substance: REGADENOSON
     Indication: MYOCARDIAL ISCHAEMIA
  13. PALEXIA [Concomitant]
     Active Substance: TAPENTADOL HYDROCHLORIDE
     Indication: PAIN
     Dosage: UNK UNK, UNKNOWN FREQ.
     Route: 065
  14. HYQVIA [Concomitant]
     Active Substance: HUMAN IMMUNOGLOBULIN G\HYALURONIDASE RECOMBINANT HUMAN
     Indication: IMMUNOGLOBULINS ABNORMAL
     Dosage: UNK UNK, UNKNOWN FREQ.
     Route: 065
  15. PRAMIPEXOL NEURAXPHARM [Concomitant]
     Indication: RESTLESS LEGS SYNDROME
     Dosage: 0.18 MG, UNKNOWN FREQ.
     Route: 065
  16. PROMETHAZINE [Concomitant]
     Active Substance: PROMETHAZINE HYDROCHLORIDE
     Indication: FEELING OF RELAXATION
     Dosage: UNK UNK, UNKNOWN FREQ.
     Route: 065
  17. SALBUHEXAL [Concomitant]
     Active Substance: ALBUTEROL
     Indication: ASTHMA
     Dosage: UNK UNK, UNKNOWN FREQ.
     Route: 065
  18. REGADENOSON [Suspect]
     Active Substance: REGADENOSON
     Indication: SCAN MYOCARDIAL PERFUSION
     Dosage: 80 ?G/ML, 1 AMPOULE, SINGLE
     Route: 042
     Dates: start: 20200423, end: 20200423
  19. REGADENOSON [Suspect]
     Active Substance: REGADENOSON
     Indication: SCAN MYOCARDIAL PERFUSION
     Dosage: 80 ?G/ML, 1 AMPOULE, SINGLE
     Route: 042
     Dates: start: 20200423, end: 20200423
  20. VIANI [Concomitant]
     Active Substance: FLUTICASONE PROPIONATE\SALMETEROL XINAFOATE
     Indication: ASTHMA
     Dosage: UNK UNK, UNKNOWN FREQ.
     Route: 065

REACTIONS (1)
  - Dermatitis allergic [Recovered/Resolved]

NARRATIVE: CASE EVENT DATE: 20200423
